FAERS Safety Report 16082582 (Version 1)
Quarter: 2019Q1

REPORT INFORMATION
  Report Type: Spontaneous
  Country: IT (occurrence: IT)
  Receive Date: 20190318
  Receipt Date: 20190318
  Transmission Date: 20190418
  Serious: Yes (Hospitalization)
  Sender: FDA-Public Use
  Company Number: IT-ACCORD-113252

PATIENT
  Age: 75 Year
  Sex: Female

DRUGS (10)
  1. CITALOPRAM [Interacting]
     Active Substance: CITALOPRAM HYDROBROMIDE
     Indication: DEPRESSED MOOD
     Route: 048
  2. LAEVOLAC EPS [Concomitant]
  3. LANSOPRAZOLE. [Concomitant]
     Active Substance: LANSOPRAZOLE
  4. CONTRAMAL [Concomitant]
     Active Substance: TRAMADOL HYDROCHLORIDE
  5. INDERAL [Concomitant]
     Active Substance: PROPRANOLOL HYDROCHLORIDE
  6. LUVION [Concomitant]
  7. SEEBRI BREEZHALER [Concomitant]
     Active Substance: GLYCOPYRROLATE
  8. NORMIX [Concomitant]
     Active Substance: RIFAXIMIN
  9. DIBASE [Concomitant]
     Active Substance: CHOLECALCIFEROL
  10. FUROSEMIDE. [Suspect]
     Active Substance: FUROSEMIDE
     Indication: CARDIAC FAILURE
     Route: 048

REACTIONS (3)
  - Hyponatraemia [Recovering/Resolving]
  - Sopor [Recovering/Resolving]
  - Drug interaction [Unknown]

NARRATIVE: CASE EVENT DATE: 20181010
